FAERS Safety Report 14382854 (Version 1)
Quarter: 2018Q1

REPORT INFORMATION
  Report Type: Spontaneous
  Country: US (occurrence: US)
  Receive Date: 20180113
  Receipt Date: 20180113
  Transmission Date: 20180509
  Serious: Yes (Other)
  Sender: FDA-Public Use
  Company Number: US-ASTRAZENECA-2018SE02857

PATIENT
  Age: 64 Year
  Sex: Female
  Weight: 177.8 kg

DRUGS (15)
  1. LISINOPRIL. [Suspect]
     Active Substance: LISINOPRIL
     Dosage: DOSE UNKNOWN
     Route: 048
  2. SERTRALINE HYDROCHLORIDE. [Concomitant]
     Active Substance: SERTRALINE HYDROCHLORIDE
  3. VICTOZA [Concomitant]
     Active Substance: LIRAGLUTIDE
  4. KORLYM [Suspect]
     Active Substance: MIFEPRISTONE
     Indication: CUSHING^S SYNDROME
     Route: 048
     Dates: start: 20170630, end: 201706
  5. MONTELUKAST SODIUM. [Concomitant]
     Active Substance: MONTELUKAST SODIUM
  6. OXYGEN. [Concomitant]
     Active Substance: OXYGEN
  7. TRESIBA [Concomitant]
     Active Substance: INSULIN DEGLUDEC
  8. NOVOLOG [Concomitant]
     Active Substance: INSULIN ASPART
  9. ASPIRIN. [Concomitant]
     Active Substance: ASPIRIN
  10. FARXIGA [Suspect]
     Active Substance: DAPAGLIFLOZIN PROPANEDIOL
     Indication: PRODUCT USED FOR UNKNOWN INDICATION
     Route: 048
     Dates: end: 20171103
  11. KORLYM [Suspect]
     Active Substance: MIFEPRISTONE
     Indication: CUSHING^S SYNDROME
     Route: 048
     Dates: start: 20170715, end: 20170729
  12. ATORVASTATIN [Concomitant]
     Active Substance: ATORVASTATIN
  13. PROAIR HFA [Concomitant]
     Active Substance: ALBUTEROL SULFATE
  14. ALEVE [Concomitant]
     Active Substance: NAPROXEN SODIUM
  15. LASIX [Concomitant]
     Active Substance: FUROSEMIDE

REACTIONS (12)
  - Wheezing [Unknown]
  - Dyspnoea [Recovering/Resolving]
  - Fatigue [Unknown]
  - Pleural effusion [Unknown]
  - Weight increased [Unknown]
  - Oxygen saturation decreased [Unknown]
  - Asthma [Unknown]
  - Pulmonary oedema [Unknown]
  - Fluid retention [Unknown]
  - Fungal infection [Unknown]
  - Oedema peripheral [Recovering/Resolving]
  - Glycosylated haemoglobin decreased [Unknown]

NARRATIVE: CASE EVENT DATE: 201707
